FAERS Safety Report 7085171-3 (Version None)
Quarter: 2010Q4

REPORT INFORMATION
  Report Type: 
  Country: None (occurrence: None)
  Receive Date: 20101105
  Receipt Date: 20101025
  Transmission Date: 20110411
  Serious: Yes (Hospitalization)
  Sender: FDA-Public Use
  Company Number: US-ELI_LILLY_AND_COMPANY-US201010006617

PATIENT
  Sex: Female

DRUGS (4)
  1. FORTEO [Suspect]
     Dates: end: 20101008
  2. FORTEO [Suspect]
     Dates: start: 20101018
  3. CALCIUM [Concomitant]
  4. VITAMIN D [Concomitant]

REACTIONS (2)
  - BLOOD CALCIUM INCREASED [None]
  - TREMOR [None]
